FAERS Safety Report 25987593 (Version 1)
Quarter: 2025Q4

REPORT INFORMATION
  Report Type: Spontaneous
  Country: VN (occurrence: VN)
  Receive Date: 20251103
  Receipt Date: 20251103
  Transmission Date: 20260117
  Serious: Yes (Other)
  Sender: BRISTOL-MYERS SQUIBB COMPANY
  Company Number: VN-BRISTOL-MYERS SQUIBB COMPANY-2025-148134

PATIENT
  Age: 85 Year
  Sex: Female

DRUGS (1)
  1. NIVOLUMAB [Suspect]
     Active Substance: NIVOLUMAB
     Indication: Malignant melanoma stage IV

REACTIONS (3)
  - Pemphigoid [Unknown]
  - Diverticulitis [Unknown]
  - Immune-mediated hyperthyroidism [Unknown]
